FAERS Safety Report 23338719 (Version 1)
Quarter: 2023Q4

REPORT INFORMATION
  Report Type: Report from Study
  Country: US (occurrence: None)
  Receive Date: 20231226
  Receipt Date: 20231226
  Transmission Date: 20240109
  Serious: Yes (Hospitalization)
  Sender: FDA-Public Use
  Company Number: 2023A287629

PATIENT
  Sex: Male
  Weight: 74.4 kg

DRUGS (4)
  1. CALQUENCE [Suspect]
     Active Substance: ACALABRUTINIB
     Indication: Chronic lymphocytic leukaemia
     Route: 048
     Dates: start: 20230517
  2. VITAMINS [Concomitant]
     Active Substance: VITAMINS
  3. ONDANSETRON [Concomitant]
     Active Substance: ONDANSETRON
  4. TERAZOSIN [Concomitant]
     Active Substance: TERAZOSIN HYDROCHLORIDE

REACTIONS (1)
  - Renal disorder [Recovering/Resolving]
